FAERS Safety Report 12807183 (Version 1)
Quarter: 2016Q4

REPORT INFORMATION
  Report Type: Spontaneous
  Country: CN (occurrence: CN)
  Receive Date: 20161004
  Receipt Date: 20161004
  Transmission Date: 20170207
  Serious: Yes (Other)
  Sender: FDA-Public Use
  Company Number: CN-NOVOPROD-512003

PATIENT
  Age: 60 Year
  Sex: Male
  Weight: 65 kg

DRUGS (2)
  1. NOVOLIN 30R [Suspect]
     Active Substance: INSULIN HUMAN
     Dosage: 28 U, BID
     Route: 058
     Dates: start: 20160525, end: 20160526
  2. NOVOLIN 30R [Suspect]
     Active Substance: INSULIN HUMAN
     Indication: DIABETES MELLITUS
     Dosage: UNK
     Route: 058

REACTIONS (2)
  - Pollakiuria [Recovered/Resolved]
  - Product impurity [Unknown]

NARRATIVE: CASE EVENT DATE: 20160625
